FAERS Safety Report 6666870-1 (Version None)
Quarter: 2010Q2

REPORT INFORMATION
  Report Type: 
  Country: None (occurrence: None)
  Receive Date: 20100405
  Receipt Date: 20100401
  Transmission Date: 20101027
  Serious: Yes (Death)
  Sender: FDA-Public Use
  Company Number: SE-ASTRAZENECA-2010SE14406

PATIENT

DRUGS (1)
  1. XYLOCAINE [Suspect]

REACTIONS (2)
  - DRUG TOXICITY [None]
  - INCORRECT DOSE ADMINISTERED [None]
